FAERS Safety Report 10769100 (Version 1)
Quarter: 2015Q1

REPORT INFORMATION
  Report Type: Spontaneous
  Country: US (occurrence: None)
  Receive Date: 20150205
  Receipt Date: 20150205
  Transmission Date: 20150721
  Serious: Yes (Hospitalization)
  Sender: FDA-Public Use
  Company Number: None

PATIENT
  Age: 43 Year
  Sex: Male
  Weight: 59.7 kg

DRUGS (3)
  1. HUMULIN N [Suspect]
     Active Substance: INSULIN HUMAN
     Indication: DIABETES MELLITUS
     Dosage: 3 UNITS, BID SQ
     Route: 058
  2. NPH INSULIN [Concomitant]
     Active Substance: INSULIN BEEF
  3. HUMULIN R [Suspect]
     Active Substance: INSULIN HUMAN
     Indication: DIABETES MELLITUS
     Dosage: 3 UNITS, TID WITH MEALS SQ
     Route: 058

REACTIONS (3)
  - Drug administration error [None]
  - Hypoglycaemia [None]
  - Seizure [None]

NARRATIVE: CASE EVENT DATE: 20140914
